FAERS Safety Report 18457900 (Version 1)
Quarter: 2020Q4

REPORT INFORMATION
  Report Type: Spontaneous
  Country: US (occurrence: US)
  Receive Date: 20201103
  Receipt Date: 20201103
  Transmission Date: 20210114
  Serious: Yes (Other)
  Sender: FDA-Public Use
  Company Number: US-PFIZER INC-2020424625

PATIENT
  Age: 60 Year
  Sex: Female
  Weight: 50.79 kg

DRUGS (1)
  1. IBRANCE [Suspect]
     Active Substance: PALBOCICLIB
     Indication: BREAST CANCER FEMALE
     Dosage: 125 MG, 1X/DAY (1 DAILY FOR 21 DAYS)
     Route: 048
     Dates: start: 202009

REACTIONS (5)
  - Dysphagia [Unknown]
  - Oesophageal carcinoma [Unknown]
  - Second primary malignancy [Unknown]
  - Chest pain [Unknown]
  - Pain [Unknown]

NARRATIVE: CASE EVENT DATE: 202010
